FAERS Safety Report 7658198-8 (Version None)
Quarter: 2011Q3

REPORT INFORMATION
  Report Type: 
  Country: None (occurrence: None)
  Receive Date: 20110805
  Receipt Date: 20110727
  Transmission Date: 20111222
  Serious: Yes (Hospitalization)
  Sender: FDA-Public Use
  Company Number: JP-JNJFOC-20110602178

PATIENT
  Sex: Male
  Weight: 70.9 kg

DRUGS (7)
  1. RABEPRAZOLE SODIUM [Concomitant]
     Indication: GASTRIC ULCER
     Route: 048
  2. GOLIMUMAB [Suspect]
     Route: 058
     Dates: start: 20110421, end: 20110421
  3. METHOTREXATE [Suspect]
     Indication: RHEUMATOID ARTHRITIS
     Route: 048
     Dates: start: 20101103, end: 20110525
  4. DEPAS [Concomitant]
     Indication: INSOMNIA
     Route: 048
     Dates: start: 20091211
  5. GOLIMUMAB [Suspect]
     Route: 058
     Dates: start: 20090130
  6. GOLIMUMAB [Suspect]
     Indication: RHEUMATOID ARTHRITIS
     Route: 058
     Dates: start: 20101112
  7. KARY UNI [Concomitant]
     Indication: CATARACT
     Route: 031
     Dates: start: 20100830

REACTIONS (1)
  - RADICULAR CYST [None]
